FAERS Safety Report 21927350 (Version 3)
Quarter: 2023Q2

REPORT INFORMATION
  Report Type: Spontaneous
  Country: GB (occurrence: GB)
  Receive Date: 20230130
  Receipt Date: 20230413
  Transmission Date: 20230722
  Serious: Yes (Other)
  Sender: FDA-Public Use
  Company Number: GB-JNJFOC-20221111343

PATIENT
  Age: 61 Year
  Sex: Female

DRUGS (4)
  1. RITUXIMAB [Suspect]
     Active Substance: RITUXIMAB
     Dosage: UNK
     Route: 065
     Dates: start: 20220810, end: 20220825
  2. DAPSONE [Suspect]
     Active Substance: DAPSONE
     Dosage: UNK
     Route: 065
     Dates: start: 20220929, end: 20221102
  3. EPREX [Suspect]
     Active Substance: ERYTHROPOIETIN
     Indication: Nephrogenic anaemia
     Dosage: 4000 IU, 2X/WEEK
     Route: 058
     Dates: start: 20221024, end: 20221103
  4. MYCOPHENOLATE MOFETIL [Suspect]
     Active Substance: MYCOPHENOLATE MOFETIL
     Dosage: UNK
     Route: 065
     Dates: start: 20220929

REACTIONS (2)
  - Aplasia pure red cell [Unknown]
  - Anti-erythropoietin antibody negative [Recovered/Resolved]

NARRATIVE: CASE EVENT DATE: 20230112
